FAERS Safety Report 4588747-8 (Version None)
Quarter: 2005Q1

REPORT INFORMATION
  Report Type: 
  Country: None (occurrence: None)
  Receive Date: 20050222
  Receipt Date: 20050113
  Transmission Date: 20050727
  Serious: Yes (Life-Threatening, Other)
  Sender: FDA-Public Use
  Company Number: US-BRISTOL-MYERS SQUIBB COMPANY-12823803

PATIENT
  Age: 57 Year
  Sex: Male

DRUGS (12)
  1. BLINDED: MURAGLITAZAR [Suspect]
     Indication: DIABETES MELLITUS NON-INSULIN-DEPENDENT
     Route: 048
     Dates: start: 20020321, end: 20050103
  2. PIOGLITAZONE HCL [Suspect]
     Indication: DIABETES MELLITUS NON-INSULIN-DEPENDENT
     Route: 048
     Dates: start: 20020321, end: 20050103
  3. COUMADIN [Suspect]
     Indication: ATRIAL FIBRILLATION
     Dates: start: 20040515
  4. METFORMIN HCL [Suspect]
     Dates: start: 20031201
  5. GLYBURIDE [Suspect]
  6. DIGITEK [Suspect]
     Indication: ATRIAL FIBRILLATION
     Dates: start: 20040722
  7. FUROSEMIDE [Concomitant]
     Indication: OEDEMA PERIPHERAL
     Dates: start: 20040708
  8. TRICOR [Concomitant]
     Indication: HYPERLIPIDAEMIA
     Dates: start: 20040621
  9. ACCUPRIL [Concomitant]
     Indication: CARDIAC FAILURE CONGESTIVE
     Dates: start: 20040608
  10. METOPROLOL SUCCINATE [Concomitant]
     Indication: CARDIAC FAILURE CONGESTIVE
     Dates: start: 20040601
  11. FERROUS SULFATE TAB [Concomitant]
     Indication: ANAEMIA
     Dates: start: 20040424
  12. AMIODARONE HCL [Concomitant]
     Indication: ATRIAL FIBRILLATION
     Dates: start: 20040517

REACTIONS (3)
  - DEPRESSION [None]
  - INTENTIONAL MISUSE [None]
  - SUICIDE ATTEMPT [None]
